FAERS Safety Report 9386170 (Version 3)
Quarter: 2013Q4

REPORT INFORMATION
  Report Type: Report from Study
  Country: JP (occurrence: JP)
  Receive Date: 20130707
  Receipt Date: 20131211
  Transmission Date: 20140711
  Serious: Yes (Hospitalization)
  Sender: FDA-Public Use
  Company Number: JP-UCBSA-090695

PATIENT
  Age: 44 Year
  Sex: Male
  Weight: 55 kg

DRUGS (4)
  1. EKEPPRA [Suspect]
     Indication: SIMPLE PARTIAL SEIZURES
     Route: 048
     Dates: start: 20121006, end: 20121016
  2. ALEVIATIN [Concomitant]
     Indication: SIMPLE PARTIAL SEIZURES
     Route: 048
     Dates: end: 20121015
  3. NOVORAPID [Concomitant]
     Dosage: 12 IU
     Route: 058
  4. LANTUS [Concomitant]
     Route: 058

REACTIONS (2)
  - Pyrexia [Recovering/Resolving]
  - C-reactive protein increased [Recovering/Resolving]
